FAERS Safety Report 22087114 (Version 2)
Quarter: 2023Q1

REPORT INFORMATION
  Report Type: Spontaneous
  Country: AU (occurrence: AU)
  Receive Date: 20230313
  Receipt Date: 20230328
  Transmission Date: 20230418
  Serious: Yes (Other)
  Sender: FDA-Public Use
  Company Number: AU-ALXN-A202302873

PATIENT
  Sex: Female

DRUGS (1)
  1. SOLIRIS [Suspect]
     Active Substance: ECULIZUMAB
     Indication: Atypical haemolytic uraemic syndrome
     Dosage: UNK
     Route: 065
     Dates: start: 20230303

REACTIONS (3)
  - Multiple organ dysfunction syndrome [Not Recovered/Not Resolved]
  - Ascites [Not Recovered/Not Resolved]
  - Drug ineffective [Unknown]
